FAERS Safety Report 12182206 (Version 3)
Quarter: 2016Q3

REPORT INFORMATION
  Report Type: Spontaneous
  Country: US (occurrence: US)
  Receive Date: 20160316
  Receipt Date: 20160926
  Transmission Date: 20161109
  Serious: Yes (Other)
  Sender: FDA-Public Use
  Company Number: PHEH2016US006067

PATIENT
  Sex: Female
  Weight: 82.86 kg

DRUGS (2)
  1. ZOFRAN [Suspect]
     Active Substance: ONDANSETRON HYDROCHLORIDE
     Indication: VOMITING IN PREGNANCY
     Dosage: 4 MG, PRN
     Route: 048
  2. ONDANSETRON [Suspect]
     Active Substance: ONDANSETRON
     Indication: VOMITING IN PREGNANCY
     Dosage: 4 MG, UNK
     Route: 048
     Dates: start: 20130828, end: 201311

REACTIONS (21)
  - Viral infection [Unknown]
  - Pain [Unknown]
  - Myalgia [Unknown]
  - Muscular weakness [Unknown]
  - Paraesthesia [Unknown]
  - Upper respiratory tract infection [Unknown]
  - Emotional distress [Unknown]
  - Rectal lesion [Unknown]
  - Hypoaesthesia [Unknown]
  - Maternal exposure during pregnancy [Unknown]
  - Anxiety [Unknown]
  - Headache [Unknown]
  - Muscle spasms [Unknown]
  - Pharyngitis [Unknown]
  - Oropharyngeal pain [Unknown]
  - Infected dermal cyst [Unknown]
  - Alopecia [Unknown]
  - Injury [Unknown]
  - Musculoskeletal pain [Unknown]
  - Amenorrhoea [Unknown]
  - Product use issue [Unknown]
